FAERS Safety Report 6017274-6 (Version None)
Quarter: 2008Q4

REPORT INFORMATION
  Report Type: 
  Country: None (occurrence: None)
  Receive Date: 20081223
  Receipt Date: 20081215
  Transmission Date: 20090506
  Serious: Yes (Hospitalization)
  Sender: FDA-Public Use
  Company Number: US-BAYER-200840965NA

PATIENT
  Age: 75 Year
  Sex: Female
  Weight: 73 kg

DRUGS (5)
  1. BETAPACE AF [Suspect]
     Indication: ATRIAL FIBRILLATION
     Dates: start: 20000101
  2. BETAPACE AF [Suspect]
     Dates: start: 20000101
  3. MAG-OX [Concomitant]
     Dosage: TOTAL DAILY DOSE: 800 MG  UNIT DOSE: 400 MG
  4. SYNTHROID [Concomitant]
  5. COUMADIN [Concomitant]
     Indication: THROMBOSIS PROPHYLAXIS
     Dosage: TOTAL DAILY DOSE: 5 MG

REACTIONS (2)
  - ARRHYTHMIA [None]
  - FALL [None]
